FAERS Safety Report 25418800 (Version 4)
Quarter: 2025Q3

REPORT INFORMATION
  Report Type: Spontaneous
  Country: AR (occurrence: AR)
  Receive Date: 20250610
  Receipt Date: 20250731
  Transmission Date: 20251020
  Serious: No
  Sender: PFIZER
  Company Number: AR-PFIZER INC-202500115730

PATIENT
  Age: 14 Year
  Sex: Female

DRUGS (1)
  1. GENOTROPIN [Suspect]
     Active Substance: SOMATROPIN
     Indication: Growth hormone deficiency
     Dosage: 1.2 MG, 1X/DAY
     Dates: start: 20231221, end: 20250603

REACTIONS (3)
  - Device issue [Unknown]
  - Device mechanical issue [Unknown]
  - Drug dose omission by device [Unknown]

NARRATIVE: CASE EVENT DATE: 20250603
